FAERS Safety Report 18234841 (Version 1)
Quarter: 2020Q3

REPORT INFORMATION
  Report Type: Report from Study
  Country: US (occurrence: US)
  Receive Date: 20200904
  Receipt Date: 20200904
  Transmission Date: 20201103
  Serious: Yes (Hospitalization)
  Sender: FDA-Public Use
  Company Number: US-EISAI MEDICAL RESEARCH-EC-2020-078092

PATIENT
  Age: 60 Year
  Sex: Female

DRUGS (1)
  1. LENVIMA [Suspect]
     Active Substance: LENVATINIB
     Indication: ENDOMETRIAL CANCER
     Route: 048
     Dates: start: 20200722, end: 20200827

REACTIONS (7)
  - Blood calcium increased [Recovered/Resolved]
  - Fatigue [Recovering/Resolving]
  - Blood sodium decreased [Recovered/Resolved]
  - Blood magnesium decreased [Recovered/Resolved]
  - Subcutaneous abscess [Unknown]
  - Blood potassium decreased [Recovered/Resolved]
  - Hypotension [Not Recovered/Not Resolved]

NARRATIVE: CASE EVENT DATE: 202007
